FAERS Safety Report 5453591-6 (Version None)
Quarter: 2007Q3

REPORT INFORMATION
  Report Type: 
  Country: None (occurrence: None)
  Receive Date: 20070917
  Receipt Date: 20070914
  Transmission Date: 20080115
  Serious: Yes (Hospitalization)
  Sender: FDA-Public Use
  Company Number: US-RB-007956-07

PATIENT
  Age: 28 Year
  Sex: Female

DRUGS (5)
  1. SUBOXONE [Suspect]
     Dosage: INITIAL INDUCTION DOSE 8 MG, ANOTHER 8 MG TWO HOURS LATER, ANOTHER 8 MG TWO HOURS LATER FOR TOTAL 24
     Route: 060
     Dates: start: 20070912
  2. SEROQUEL [Concomitant]
     Route: 048
     Dates: start: 20070912
  3. HALDOL [Concomitant]
     Indication: AGITATION
     Dosage: UNKNOWN DOSE
     Route: 065
     Dates: start: 20070913, end: 20070913
  4. ATIVAN [Concomitant]
     Indication: AGITATION
     Dosage: UNKNOWN DOSE
     Route: 065
     Dates: start: 20070913, end: 20070913
  5. DIAZEPAM [Concomitant]
     Dosage: 10 MG IV PUSH X1
     Route: 040
     Dates: start: 20070913, end: 20070913

REACTIONS (4)
  - AGITATION [None]
  - ANXIETY [None]
  - CONFUSIONAL STATE [None]
  - DELIRIUM [None]
